FAERS Safety Report 24910659 (Version 1)
Quarter: 2025Q1

REPORT INFORMATION
  Report Type: Spontaneous
  Country: US (occurrence: US)
  Receive Date: 20250131
  Receipt Date: 20250131
  Transmission Date: 20250409
  Serious: Yes (Other)
  Sender: PFIZER
  Company Number: US-PFIZER INC-202500020404

PATIENT
  Sex: Female

DRUGS (1)
  1. VERAPAMIL HCL [Suspect]
     Active Substance: VERAPAMIL HYDROCHLORIDE

REACTIONS (7)
  - Neuropathy peripheral [Unknown]
  - Muscle spasms [Unknown]
  - Sciatica [Unknown]
  - Abdominal distension [Unknown]
  - Flatulence [Unknown]
  - Paraesthesia [Unknown]
  - Muscle spasms [Unknown]
